FAERS Safety Report 6647978-3 (Version None)
Quarter: 2010Q1

REPORT INFORMATION
  Report Type: 
  Country: None (occurrence: None)
  Receive Date: 20100318
  Receipt Date: 20100303
  Transmission Date: 20100710
  Serious: Yes (Death, Hospitalization, Other)
  Sender: FDA-Public Use
  Company Number: VAL_00385_2010

PATIENT
  Sex: Female
  Weight: 51.2 kg

DRUGS (5)
  1. ROCALTROL [Suspect]
     Indication: OSTEOPOROSIS
     Dosage: 0.5 UG BID ORAL
     Route: 048
     Dates: start: 20000101
  2. GLAKAY [Concomitant]
  3. ETIDRONATE DISODIUM [Concomitant]
  4. AMLODIPINE [Concomitant]
  5. PRAVASTATIN [Concomitant]

REACTIONS (10)
  - HYPERCALCAEMIA [None]
  - INAPPROPRIATE SCHEDULE OF DRUG ADMINISTRATION [None]
  - INCORRECT DOSE ADMINISTERED [None]
  - INFARCTION [None]
  - NODULE [None]
  - PANCREATIC PSEUDOCYST [None]
  - PARATHYROID DISORDER [None]
  - PARATHYROID TUMOUR BENIGN [None]
  - RENAL FAILURE ACUTE [None]
  - THERAPEUTIC AGENT TOXICITY [None]
